FAERS Safety Report 16424576 (Version 1)
Quarter: 2019Q2

REPORT INFORMATION
  Report Type: Spontaneous
  Country: PL (occurrence: PL)
  Receive Date: 20190613
  Receipt Date: 20190613
  Transmission Date: 20190711
  Serious: Yes (Hospitalization)
  Sender: FDA-Public Use
  Company Number: PL-ROCHE-2335753

PATIENT
  Age: 78 Year
  Sex: Female

DRUGS (4)
  1. CALCIUM CARBONATE. [Concomitant]
     Active Substance: CALCIUM CARBONATE
     Indication: OSTEOPOROSIS
     Route: 065
  2. SULFASALAZINE. [Concomitant]
     Active Substance: SULFASALAZINE
     Indication: SPONDYLOARTHROPATHY
  3. BONVIVA [Suspect]
     Active Substance: IBANDRONATE SODIUM
     Indication: OSTEOPOROSIS
     Route: 048
  4. VITAMIN D3 [Concomitant]
     Active Substance: CHOLECALCIFEROL
     Indication: OSTEOPOROSIS
     Route: 065

REACTIONS (2)
  - Pathological fracture [Recovered/Resolved]
  - Bone pain [Recovered/Resolved]
